APPROVED DRUG PRODUCT: LATANOPROST
Active Ingredient: LATANOPROST
Strength: 0.005%
Dosage Form/Route: SOLUTION/DROPS;OPHTHALMIC
Application: A200925 | Product #001 | TE Code: AT
Applicant: AMRING PHARMACEUTICALS INC
Approved: Mar 22, 2011 | RLD: No | RS: No | Type: RX